FAERS Safety Report 16462986 (Version 1)
Quarter: 2019Q2

REPORT INFORMATION
  Report Type: Spontaneous
  Country: US (occurrence: US)
  Receive Date: 20190621
  Receipt Date: 20190621
  Transmission Date: 20190711
  Serious: Yes (Hospitalization)
  Sender: FDA-Public Use
  Company Number: US-TEVA-2019-US-1064007

PATIENT
  Sex: Male
  Weight: 62.65 kg

DRUGS (1)
  1. EPOPROSTENOL. [Suspect]
     Active Substance: EPOPROSTENOL
     Indication: PULMONARY HYPERTENSION
     Dosage: 87 NG PER KG PER MIN, FREQUENCY IV CONT
     Route: 065
     Dates: start: 20161004

REACTIONS (1)
  - Liver transplant [Unknown]
